FAERS Safety Report 4535067-3 (Version None)
Quarter: 2004Q4

REPORT INFORMATION
  Report Type: 
  Country: None (occurrence: None)
  Receive Date: 20041222
  Receipt Date: 20041220
  Transmission Date: 20050328
  Serious: Yes (Death)
  Sender: FDA-Public Use
  Company Number: US-BRISTOL-MYERS SQUIBB COMPANY-12801015

PATIENT
  Age: 78 Year
  Sex: Male

DRUGS (1)
  1. MEGACE [Suspect]

REACTIONS (1)
  - DEATH [None]
